FAERS Safety Report 10003903 (Version 2)
Quarter: 2014Q2

REPORT INFORMATION
  Report Type: Spontaneous
  Country: US (occurrence: US)
  Receive Date: 20140312
  Receipt Date: 20140611
  Transmission Date: 20141212
  Serious: No
  Sender: FDA-Public Use
  Company Number: US-INCYTE CORPORATION-2014IN000116

PATIENT
  Age: 72 Year
  Sex: Female

DRUGS (3)
  1. JAKAFI [Suspect]
     Indication: MYELODYSPLASTIC SYNDROME
     Dosage: 10 MG, QD
     Route: 048
     Dates: start: 20131213
  2. JAKAFI [Suspect]
     Dosage: 10 MG, QD
     Route: 048
     Dates: start: 20140228
  3. ZOLOFT [Concomitant]

REACTIONS (7)
  - Dizziness [Unknown]
  - Platelet count decreased [Recovered/Resolved]
  - Blood urine present [Unknown]
  - Mass [Unknown]
  - Vomiting [Unknown]
  - Feeling hot [Unknown]
  - Contusion [Not Recovered/Not Resolved]
